FAERS Safety Report 12897170 (Version 6)
Quarter: 2016Q4

REPORT INFORMATION
  Report Type: Spontaneous
  Country: JP (occurrence: JP)
  Receive Date: 20161031
  Receipt Date: 20161209
  Transmission Date: 20170207
  Serious: Yes (Hospitalization, Other)
  Sender: FDA-Public Use
  Company Number: PHJP2016JP031011

PATIENT
  Age: 50 Year
  Sex: Female

DRUGS (4)
  1. PREDNISOLON [Concomitant]
     Active Substance: PREDNISOLONE
     Indication: RHEUMATIC DISORDER
     Dosage: 10 MG, QD
     Route: 065
  2. INFLIXIMAB [Concomitant]
     Active Substance: INFLIXIMAB
     Indication: RHEUMATIC DISORDER
     Dosage: UNK
     Route: 065
  3. CICLOSPORIN [Suspect]
     Active Substance: CYCLOSPORINE
     Indication: RHEUMATIC DISORDER
     Dosage: UNK
     Route: 048
  4. METHOTREXATE. [Concomitant]
     Active Substance: METHOTREXATE
     Indication: RHEUMATIC DISORDER
     Dosage: UNK
     Route: 065

REACTIONS (6)
  - Gastric ulcer perforation [Recovering/Resolving]
  - Cytomegalovirus gastrointestinal ulcer [Recovering/Resolving]
  - Systemic inflammatory response syndrome [Recovering/Resolving]
  - Abdominal pain [Recovering/Resolving]
  - Septic shock [Recovering/Resolving]
  - Gastric ulcer [Recovering/Resolving]
